FAERS Safety Report 10762962 (Version 1)
Quarter: 2015Q1

REPORT INFORMATION
  Report Type: Spontaneous
  Country: US (occurrence: US)
  Receive Date: 20150204
  Receipt Date: 20150204
  Transmission Date: 20150721
  Serious: Yes (Hospitalization)
  Sender: FDA-Public Use
  Company Number: US-ABBVIE-15P-163-1339527-00

PATIENT
  Sex: Male

DRUGS (2)
  1. ANDROGEL [Suspect]
     Active Substance: TESTOSTERONE
     Indication: BLOOD TESTOSTERONE DECREASED
     Route: 062
     Dates: start: 201104, end: 201111
  2. TESTIM [Suspect]
     Active Substance: TESTOSTERONE
     Indication: BLOOD TESTOSTERONE DECREASED
     Route: 065
     Dates: start: 200903, end: 200908

REACTIONS (16)
  - Emotional disorder [Unknown]
  - Impaired work ability [Unknown]
  - Deep vein thrombosis [Unknown]
  - Injury [Unknown]
  - Anxiety [Unknown]
  - Pulmonary embolism [Unknown]
  - Social problem [Unknown]
  - Pain [Unknown]
  - Economic problem [Unknown]
  - Clostridium difficile colitis [Unknown]
  - Dysarthria [Unknown]
  - Physical disability [Unknown]
  - Dyspnoea [Unknown]
  - Fatigue [Unknown]
  - Emotional distress [Unknown]
  - Asthenia [Unknown]

NARRATIVE: CASE EVENT DATE: 20111109
